FAERS Safety Report 10311521 (Version 4)
Quarter: 2014Q3

REPORT INFORMATION
  Report Type: Report from Study
  Country: US (occurrence: US)
  Receive Date: 20140717
  Receipt Date: 20140826
  Transmission Date: 20150326
  Serious: Yes (Other)
  Sender: FDA-Public Use
  Company Number: US-SA-2014SA042979

PATIENT
  Age: 54 Year
  Sex: Female
  Weight: 115 kg

DRUGS (10)
  1. AUBAGIO [Suspect]
     Active Substance: TERIFLUNOMIDE
     Indication: MULTIPLE SCLEROSIS
     Route: 048
     Dates: start: 20140324, end: 20140420
  2. AMITRIPTYLINE [Concomitant]
     Active Substance: AMITRIPTYLINE
     Indication: MIGRAINE
  3. TOPIRAMATE. [Concomitant]
     Active Substance: TOPIRAMATE
     Indication: MIGRAINE
     Dates: start: 20140310
  4. VENLAFAXINE HYDROCHLORIDE. [Concomitant]
     Active Substance: VENLAFAXINE HYDROCHLORIDE
     Indication: DEPRESSION
     Dates: start: 20140310
  5. CENTRUM [Concomitant]
     Active Substance: VITAMINS
  6. AUBAGIO [Suspect]
     Active Substance: TERIFLUNOMIDE
     Indication: MULTIPLE SCLEROSIS
     Route: 048
     Dates: start: 20140715, end: 20140729
  7. PROVIGIL [Concomitant]
     Active Substance: MODAFINIL
     Indication: FATIGUE
     Dosage: IN THE ARM?STARTED YEARS AGO
  8. PROCHLORPERAZINE. [Concomitant]
     Active Substance: PROCHLORPERAZINE
     Indication: MIGRAINE
     Dates: start: 20140310
  9. PROZAC [Concomitant]
     Active Substance: FLUOXETINE HYDROCHLORIDE
     Indication: DEPRESSION
  10. AXERT [Concomitant]
     Active Substance: ALMOTRIPTAN MALATE
     Indication: MIGRAINE
     Dates: start: 20140301

REACTIONS (27)
  - Oral mucosal blistering [Unknown]
  - Fatigue [Unknown]
  - Malaise [Unknown]
  - Mood altered [Unknown]
  - Dyspnoea [Unknown]
  - Constipation [Recovering/Resolving]
  - Ageusia [Not Recovered/Not Resolved]
  - Depression [Unknown]
  - Asthenia [Unknown]
  - Nausea [Unknown]
  - Haemorrhoids [Unknown]
  - Nephrolithiasis [Recovering/Resolving]
  - Dizziness [Unknown]
  - Pain [Unknown]
  - Multiple sclerosis relapse [Unknown]
  - Headache [Unknown]
  - Chromaturia [Unknown]
  - Muscle spasms [Unknown]
  - Irritability [Unknown]
  - Blood urine present [Not Recovered/Not Resolved]
  - Thyroid function test abnormal [Unknown]
  - Fatigue [Not Recovered/Not Resolved]
  - Hypotension [Not Recovered/Not Resolved]
  - Hypertension [Unknown]
  - Chills [Unknown]
  - Parosmia [Unknown]
  - Gait disturbance [Unknown]

NARRATIVE: CASE EVENT DATE: 2007
